FAERS Safety Report 8007248-8 (Version None)
Quarter: 2011Q4

REPORT INFORMATION
  Report Type: 
  Country: None (occurrence: None)
  Receive Date: 20111227
  Receipt Date: 20111220
  Transmission Date: 20120403
  Serious: Yes (Hospitalization)
  Sender: FDA-Public Use
  Company Number: US-JNJFOC-20100904940

PATIENT
  Age: 65 Year
  Sex: Male
  Weight: 108 kg

DRUGS (20)
  1. CYCLOPHOSPHAMIDE [Suspect]
     Route: 065
  2. METHOTREXATE [Suspect]
     Indication: BURKITT'S LYMPHOMA STAGE IV
     Route: 042
  3. VINCRISTINE [Suspect]
     Route: 065
  4. IFOSFAMIDE [Suspect]
     Route: 065
  5. LEUCOVORIN CALCIUM [Suspect]
     Indication: BURKITT'S LYMPHOMA STAGE IV
     Route: 065
  6. FILGRASTIM [Suspect]
     Indication: BURKITT'S LYMPHOMA STAGE IV
     Route: 065
  7. CYTARABINE [Suspect]
     Route: 065
  8. ETOPOSIDE [Suspect]
     Indication: BURKITT'S LYMPHOMA STAGE IV
     Route: 065
  9. FILGRASTIM [Suspect]
     Route: 065
  10. METHOTREXATE [Suspect]
     Route: 042
  11. RITUXIMAB [Suspect]
     Route: 042
  12. ETOPOSIDE [Suspect]
     Route: 065
  13. CYCLOPHOSPHAMIDE [Suspect]
     Indication: BURKITT'S LYMPHOMA STAGE IV
     Route: 065
  14. RITUXIMAB [Suspect]
     Indication: BURKITT'S LYMPHOMA STAGE IV
     Route: 042
  15. VINCRISTINE [Suspect]
     Indication: BURKITT'S LYMPHOMA STAGE IV
     Route: 065
  16. LEUCOVORIN CALCIUM [Suspect]
     Route: 065
  17. DOXORUBICIN HCL [Suspect]
     Indication: BURKITT'S LYMPHOMA STAGE IV
     Route: 042
     Dates: end: 20101202
  18. DOXORUBICIN HCL [Suspect]
     Dosage: ONE TIME ON DAY ONE.
     Route: 042
     Dates: start: 20100811, end: 20100811
  19. IFOSFAMIDE [Suspect]
     Indication: BURKITT'S LYMPHOMA STAGE IV
     Route: 065
  20. CYTARABINE [Suspect]
     Indication: BURKITT'S LYMPHOMA STAGE IV
     Route: 065

REACTIONS (8)
  - FEBRILE NEUTROPENIA [None]
  - GASTROINTESTINAL HAEMORRHAGE [None]
  - STOMATITIS [None]
  - BLOOD MAGNESIUM ABNORMAL [None]
  - LEUKOPENIA [None]
  - THROMBOCYTOPENIA [None]
  - HYPOCALCAEMIA [None]
  - LYMPHOPENIA [None]
